FAERS Safety Report 8040231-5 (Version None)
Quarter: 2012Q1

REPORT INFORMATION
  Report Type: 
  Country: None (occurrence: None)
  Receive Date: 20120111
  Receipt Date: 20111222
  Transmission Date: 20120608
  Serious: No
  Sender: FDA-Public Use
  Company Number: US-AMGEN-USASP2011068679

PATIENT
  Sex: Female

DRUGS (2)
  1. ENBREL [Suspect]
     Dosage: UNK
     Dates: start: 20111001
  2. ENBREL [Suspect]
     Indication: RHEUMATOID ARTHRITIS
     Dosage: 50 MG, QWK
     Dates: start: 19940101, end: 20090101

REACTIONS (9)
  - FATIGUE [None]
  - HEADACHE [None]
  - CHILLS [None]
  - HAEMATEMESIS [None]
  - THERAPEUTIC RESPONSE DECREASED [None]
  - ABDOMINAL PAIN UPPER [None]
  - CONTUSION [None]
  - NAUSEA [None]
  - HAEMORRHAGE [None]
